FAERS Safety Report 24060209 (Version 3)
Quarter: 2024Q3

REPORT INFORMATION
  Report Type: Report from Study
  Country: CN (occurrence: CN)
  Receive Date: 20240708
  Receipt Date: 20240816
  Transmission Date: 20241017
  Serious: Yes (Hospitalization, Other)
  Sender: BAXTER
  Company Number: CN-BAXTER-2024BAX021043

PATIENT
  Age: 72 Year
  Sex: Female
  Weight: 54.5 kg

DRUGS (16)
  1. CYCLOPHOSPHAMIDE [Suspect]
     Active Substance: CYCLOPHOSPHAMIDE
     Indication: Diffuse large B-cell lymphoma stage IV
     Dosage: 860.63 MG, EVERY 3 WEEKS, ONGOING
     Route: 042
     Dates: start: 20240522
  2. DOXORUBICIN [Suspect]
     Active Substance: DOXORUBICIN
     Indication: Diffuse large B-cell lymphoma stage IV
     Dosage: 57.38 MG, EVERY 3 WEEKS,ONGOING
     Route: 042
     Dates: start: 20240522
  3. VINCRISTINE [Suspect]
     Active Substance: VINCRISTINE
     Indication: Diffuse large B-cell lymphoma stage IV
     Dosage: 2 MG, EVERY 3 WEEKS,ONGOING
     Route: 042
     Dates: start: 20240522
  4. EPCORITAMAB [Suspect]
     Active Substance: EPCORITAMAB
     Indication: Diffuse large B-cell lymphoma stage IV
     Dosage: 0.16 MG PRIMING DOSE: C1D1, TOTAL
     Route: 058
     Dates: start: 20240522, end: 20240522
  5. EPCORITAMAB [Suspect]
     Active Substance: EPCORITAMAB
     Dosage: 0.16 MG RE-PRIMING DOSE: C1D1, TOTAL
     Route: 058
     Dates: start: 20240605, end: 20240605
  6. EPCORITAMAB [Suspect]
     Active Substance: EPCORITAMAB
     Dosage: 0.8 MG INTERMEDIATE DOSE: C1D8, TOTAL
     Route: 058
     Dates: start: 20240613, end: 20240613
  7. EPCORITAMAB [Suspect]
     Active Substance: EPCORITAMAB
     Dosage: 48 MG FULL DOSE: C1D15, TOTAL,ONGOING
     Route: 058
     Dates: start: 20240620, end: 20240620
  8. EPCORITAMAB [Suspect]
     Active Substance: EPCORITAMAB
     Dosage: 48 MG C2- 4, D1, 8 + 15, EVERY 1 WEEKS, ONGOING
     Route: 058
     Dates: start: 20240627
  9. PREDNISONE [Suspect]
     Active Substance: PREDNISONE
     Indication: Diffuse large B-cell lymphoma stage IV
     Dosage: 100 MG DAILY C1-6, DAY 1-5, EVERY 1 DAYS,ONGOING
     Route: 048
     Dates: start: 20240521
  10. RITUXIMAB [Suspect]
     Active Substance: RITUXIMAB
     Indication: Diffuse large B-cell lymphoma stage IV
     Dosage: 573.75 MG, EVERY 3 WEEKS
     Route: 042
     Dates: start: 20240521
  11. COMPOUND CHLORHEXIDINE GARGLE [Concomitant]
     Indication: Mouth ulceration
     Dosage: 20 ML, 3/DAYS
     Route: 065
     Dates: start: 20240529
  12. ENTECAVIR [Concomitant]
     Active Substance: ENTECAVIR
     Indication: Antiviral prophylaxis
     Dosage: 0.5 MG, EVERY 1 DAYS
     Route: 065
     Dates: start: 20240521
  13. SULFAMETHOXAZOLE [Concomitant]
     Active Substance: SULFAMETHOXAZOLE
     Indication: Antifungal prophylaxis
     Dosage: 0.4 G/G, EVERY 48 HOURS
     Route: 065
     Dates: start: 20240529
  14. DEXAMETHASONE ACETATE [Concomitant]
     Active Substance: DEXAMETHASONE ACETATE
     Indication: Prophylaxis
     Dosage: 15 MG, EVERY 1 DAYS
     Route: 065
     Dates: start: 20240620, end: 20240623
  15. METFORMIN HYDROCHLORIDE [Concomitant]
     Active Substance: METFORMIN HYDROCHLORIDE
     Indication: Diabetes mellitus
     Dosage: 0.5 MG, EVERY 12 HOURS, THERAPY START DATE: 2014
     Route: 065
  16. INSULIN NOS [Concomitant]
     Active Substance: INSULIN NOS
     Indication: Diabetes mellitus
     Dosage: 18 U, EVERY 12 HOURS, THERAPY START DATE FROM: 2011
     Route: 065

REACTIONS (3)
  - Neutropenia [Recovered/Resolved]
  - Leukopenia [Recovered/Resolved]
  - Pneumonia [Recovered/Resolved]

NARRATIVE: CASE EVENT DATE: 20240620
